FAERS Safety Report 15511352 (Version 1)
Quarter: 2018Q4

REPORT INFORMATION
  Report Type: Spontaneous
  Country: US (occurrence: US)
  Receive Date: 20181017
  Receipt Date: 20181017
  Transmission Date: 20190205
  Serious: Yes (Disabling)
  Sender: FDA-Public Use
  Company Number: None

PATIENT
  Age: 54 Year
  Sex: Male
  Weight: 103.5 kg

DRUGS (5)
  1. MINOXIDIL. [Concomitant]
     Active Substance: MINOXIDIL
  2. GINKGO BILOBA [Concomitant]
     Active Substance: GINKGO
  3. LEVOFLOXACIN. [Suspect]
     Active Substance: LEVOFLOXACIN
     Indication: COLITIS
     Dosage: ?          QUANTITY:1 TABLET(S);?
     Route: 048
     Dates: start: 20180221, end: 20180222
  4. COENZYME Q10 [Concomitant]
     Active Substance: UBIDECARENONE
  5. LOSARTAN. [Concomitant]
     Active Substance: LOSARTAN

REACTIONS (10)
  - Tendon pain [None]
  - Vision blurred [None]
  - Depression [None]
  - Gait inability [None]
  - Feeling abnormal [None]
  - Adverse drug reaction [None]
  - Neuralgia [None]
  - Headache [None]
  - Mental impairment [None]
  - Product complaint [None]

NARRATIVE: CASE EVENT DATE: 20180223
